FAERS Safety Report 9927256 (Version 1)
Quarter: 2014Q1

REPORT INFORMATION
  Report Type: Spontaneous
  Country: US (occurrence: US)
  Receive Date: 20140226
  Receipt Date: 20140226
  Transmission Date: 20141002
  Serious: Yes (Hospitalization)
  Sender: FDA-Public Use
  Company Number: US-AMGEN-USASP2014004900

PATIENT
  Age: 46 Year
  Sex: Male

DRUGS (1)
  1. ENBREL [Suspect]
     Indication: RHEUMATOID ARTHRITIS
     Dosage: UNKNOWN DOSAGE WEEKLY
     Route: 065
     Dates: start: 20131016, end: 20131218

REACTIONS (5)
  - Subcutaneous abscess [Recovered/Resolved]
  - Abscess [Recovered/Resolved]
  - Scab [Unknown]
  - Laceration [Unknown]
  - Injection site pain [Recovered/Resolved]
